FAERS Safety Report 23908839 (Version 1)
Quarter: 2024Q2

REPORT INFORMATION
  Report Type: Spontaneous
  Country: CN (occurrence: CN)
  Receive Date: 20240528
  Receipt Date: 20240528
  Transmission Date: 20240716
  Serious: Yes (Other)
  Sender: FDA-Public Use
  Company Number: CN-BRACCO-2024CN02985

PATIENT
  Age: 71 Year
  Sex: Male

DRUGS (5)
  1. SULFUR HEXAFLUORIDE [Suspect]
     Active Substance: SULFUR HEXAFLUORIDE
     Indication: Ultrasound pancreas
     Dosage: 1.2 ML, SINGLE
     Route: 042
     Dates: start: 20240522, end: 20240522
  2. SULFUR HEXAFLUORIDE [Suspect]
     Active Substance: SULFUR HEXAFLUORIDE
     Indication: Ultrasound pancreas
     Dosage: 1.2 ML, SINGLE
     Route: 042
     Dates: start: 20240522, end: 20240522
  3. SULFUR HEXAFLUORIDE [Suspect]
     Active Substance: SULFUR HEXAFLUORIDE
     Indication: Ultrasound pancreas
     Dosage: 1.2 ML, SINGLE
     Route: 042
     Dates: start: 20240522, end: 20240522
  4. FEBUXOSTAT [Concomitant]
     Active Substance: FEBUXOSTAT
  5. RESERPINE [Concomitant]
     Active Substance: RESERPINE

REACTIONS (6)
  - Hyperpyrexia [Recovered/Resolved]
  - Dizziness [Recovered/Resolved]
  - Hyperhidrosis [Recovered/Resolved]
  - Palpitations [Recovered/Resolved]
  - Musculoskeletal chest pain [Recovered/Resolved]
  - Chills [Recovered/Resolved]

NARRATIVE: CASE EVENT DATE: 20240522
